FAERS Safety Report 10660348 (Version 7)
Quarter: 2015Q2

REPORT INFORMATION
  Report Type: Spontaneous
  Country: US (occurrence: US)
  Receive Date: 20141217
  Receipt Date: 20150427
  Transmission Date: 20150821
  Serious: Yes (Other)
  Sender: FDA-Public Use
  Company Number: US-009507513-1110USA03466

PATIENT
  Sex: Male
  Weight: 75.74 kg

DRUGS (2)
  1. PROPECIA [Suspect]
     Active Substance: FINASTERIDE
     Indication: ALOPECIA
     Dosage: 1 MG, UNK
     Route: 048
     Dates: start: 200109, end: 2003
  2. FINASTERIDE. [Suspect]
     Active Substance: FINASTERIDE
     Indication: ALOPECIA
     Dosage: 1 MG, UNK
     Route: 048
     Dates: start: 200302, end: 200310

REACTIONS (64)
  - Anxiety [Not Recovered/Not Resolved]
  - Ear discomfort [Unknown]
  - Dysphoria [Unknown]
  - Self-medication [Unknown]
  - Pain [Unknown]
  - Lethargy [Recovered/Resolved]
  - Fatigue [Unknown]
  - Testicular disorder [Unknown]
  - Social problem [Unknown]
  - Visual acuity reduced [Unknown]
  - Asthenia [Unknown]
  - Back pain [Unknown]
  - Stress [Not Recovered/Not Resolved]
  - Discomfort [Unknown]
  - Hypothyroidism [Unknown]
  - Hyperacusis [Unknown]
  - White blood cell count decreased [Unknown]
  - Tinnitus [Unknown]
  - Skin disorder [Unknown]
  - Personality disorder [Unknown]
  - Abdominal pain upper [Unknown]
  - Sex hormone binding globulin increased [Recovered/Resolved]
  - Blood testosterone decreased [Recovered/Resolved]
  - Cognitive disorder [Unknown]
  - Feeling abnormal [Not Recovered/Not Resolved]
  - Weight decreased [Unknown]
  - Tic [Unknown]
  - Haemorrhoids [Unknown]
  - Frequent bowel movements [Unknown]
  - Orgasm abnormal [Unknown]
  - Rash [Unknown]
  - Ejaculation failure [Unknown]
  - Constipation [Recovering/Resolving]
  - Anger [Unknown]
  - Acquired oesophageal web [Unknown]
  - Dandruff [Unknown]
  - Breath odour [Unknown]
  - Blood pressure increased [Unknown]
  - Loss of libido [Not Recovered/Not Resolved]
  - Depression [Not Recovered/Not Resolved]
  - Hearing impaired [Unknown]
  - Hormone level abnormal [Unknown]
  - Asthenia [Recovering/Resolving]
  - Feeling jittery [Unknown]
  - Feeling abnormal [Unknown]
  - Resting tremor [Unknown]
  - Social phobia [Unknown]
  - Sneezing [Unknown]
  - Hypogonadism [Unknown]
  - Sexual dysfunction [Recovered/Resolved]
  - Sexual dysfunction [Unknown]
  - Erectile dysfunction [Recovered/Resolved]
  - Ejaculation disorder [Unknown]
  - Mood altered [Unknown]
  - Feeling cold [Unknown]
  - Chest pain [Unknown]
  - Dyspepsia [Unknown]
  - Eczema asteatotic [Unknown]
  - Dry skin [Unknown]
  - Tongue coated [Unknown]
  - Blood homocysteine increased [Unknown]
  - Peripheral coldness [Unknown]
  - Adverse event [Unknown]
  - Weight increased [Unknown]

NARRATIVE: CASE EVENT DATE: 200201
